FAERS Safety Report 13347183 (Version 1)
Quarter: 2017Q1

REPORT INFORMATION
  Report Type: Spontaneous
  Country: US (occurrence: US)
  Receive Date: 20170317
  Receipt Date: 20170317
  Transmission Date: 20170428
  Serious: No
  Sender: FDA-Public Use
  Company Number: US-PERRIGO-16US019940

PATIENT
  Age: 42 Year
  Sex: Male
  Weight: 77.98 kg

DRUGS (3)
  1. CLINDAMYCIN AND BENZOYL PEROXIDE [Suspect]
     Active Substance: BENZOYL PEROXIDE\CLINDAMYCIN PHOSPHATE
     Indication: ACNE
     Dosage: SMALL AMOUNT, QAM TO ENTIRE FACE
     Route: 061
     Dates: start: 20160903, end: 20160904
  2. TAZORAC [Concomitant]
     Active Substance: TAZAROTENE
     Indication: ACNE
     Dosage: UNKNOWN, QHS
     Route: 065
     Dates: start: 2004
  3. CLINDAMYCIN AND BENZOYL PEROXIDE [Suspect]
     Active Substance: BENZOYL PEROXIDE\CLINDAMYCIN PHOSPHATE
     Dosage: SMALL AMOUNT, QAM TO ENTIRE FACE
     Route: 061
     Dates: start: 20160907

REACTIONS (2)
  - Application site irritation [Unknown]
  - Inappropriate schedule of drug administration [Not Recovered/Not Resolved]

NARRATIVE: CASE EVENT DATE: 20160903
